FAERS Safety Report 7920412-9 (Version None)
Quarter: 2011Q4

REPORT INFORMATION
  Report Type: 
  Country: None (occurrence: None)
  Receive Date: 20111117
  Receipt Date: 20111104
  Transmission Date: 20120403
  Serious: Yes (Hospitalization, Other)
  Sender: FDA-Public Use
  Company Number: PHHY2011CA60376

PATIENT
  Sex: Male

DRUGS (3)
  1. SANDOSTATIN [Suspect]
     Indication: CARCINOID TUMOUR
     Dosage: 50 UG, TID
     Route: 058
     Dates: start: 20110623
  2. SANDOSTATIN LAR [Suspect]
     Indication: CARCINOID TUMOUR
     Dosage: 30 MG, EVERY 4 WEEKS
     Route: 030
     Dates: start: 20110714
  3. SANDOSTATIN [Suspect]
     Dosage: 50 UG, TID
     Route: 058
     Dates: end: 20110705

REACTIONS (13)
  - BRONCHITIS [None]
  - DIARRHOEA [None]
  - COUGH [None]
  - ABDOMINAL PAIN [None]
  - CREPITATIONS [None]
  - WHEEZING [None]
  - DYSPNOEA [None]
  - HEART RATE DECREASED [None]
  - ASTHENIA [None]
  - INFLUENZA [None]
  - RHINORRHOEA [None]
  - SUFFOCATION FEELING [None]
  - BLOOD PRESSURE SYSTOLIC INCREASED [None]
